FAERS Safety Report 4704185-9 (Version None)
Quarter: 2005Q2

REPORT INFORMATION
  Report Type: 
  Country: None (occurrence: None)
  Receive Date: 20050628
  Receipt Date: 20050621
  Transmission Date: 20051028
  Serious: Yes (Other)
  Sender: FDA-Public Use
  Company Number: 200512115BCC

PATIENT
  Age: 61 Year
  Sex: Male
  Weight: 117.9352 kg

DRUGS (6)
  1. ORIGINAL ALKA- SELTZER [Suspect]
     Indication: DYSPEPSIA
     Dosage: ORAL
     Route: 048
  2. ADVIL [Concomitant]
  3. TUMS [Concomitant]
  4. SENIOR VITAMINS [Concomitant]
  5. POTASSIUM CHLORIDE [Concomitant]
  6. TWO HIGH BLOOD PRESSURE MEDICATIONS [Concomitant]

REACTIONS (4)
  - BENIGN PROSTATIC HYPERPLASIA [None]
  - CHOLELITHIASIS [None]
  - MYOCARDIAL INFARCTION [None]
  - NEPHROLITHIASIS [None]
